FAERS Safety Report 10084028 (Version 1)
Quarter: 2014Q2

REPORT INFORMATION
  Report Type: Spontaneous
  Country: US (occurrence: US)
  Receive Date: 20140417
  Receipt Date: 20140417
  Transmission Date: 20141212
  Serious: Yes (Hospitalization)
  Sender: FDA-Public Use
  Company Number: US-SA-2014SA044171

PATIENT
  Age: 70 Year
  Sex: Female

DRUGS (4)
  1. ARAVA [Suspect]
     Indication: RHEUMATOID ARTHRITIS
     Route: 065
     Dates: end: 201401
  2. ASACOL [Concomitant]
  3. COUMADIN [Concomitant]
     Indication: ATRIAL FIBRILLATION
  4. PREDNISONE [Concomitant]

REACTIONS (1)
  - Hepatic enzyme increased [Not Recovered/Not Resolved]
